FAERS Safety Report 15852575 (Version 1)
Quarter: 2019Q1

REPORT INFORMATION
  Report Type: Report from Study
  Country: GB (occurrence: GB)
  Receive Date: 20190122
  Receipt Date: 20190122
  Transmission Date: 20190417
  Serious: Yes (Other)
  Sender: FDA-Public Use
  Company Number: GB-BAYER-2019-015964

PATIENT
  Sex: Female

DRUGS (1)
  1. ASPIRIN. [Suspect]
     Active Substance: ASPIRIN
     Indication: IMMUNE TOLERANCE INDUCTION

REACTIONS (2)
  - Asthma [Recovered/Resolved]
  - Drug hypersensitivity [Recovered/Resolved]
